FAERS Safety Report 5729024-9 (Version None)
Quarter: 2008Q2

REPORT INFORMATION
  Report Type: 
  Country: None (occurrence: None)
  Receive Date: 20080505
  Receipt Date: 20080505
  Transmission Date: 20081010
  Serious: Yes (Other)
  Sender: FDA-Public Use
  Company Number: None

PATIENT
  Age: 81 Year
  Sex: Female
  Weight: 68.9467 kg

DRUGS (3)
  1. LYRICA [Suspect]
     Indication: OSTEOPOROSIS
     Dosage: GAVE ME 60 - FILLED AT CVS 9031 SW 94 ST MIA 33156 RX C37465900- #22
     Dates: start: 20080410, end: 20080411
  2. LYRICA [Suspect]
     Indication: SPINAL COLUMN STENOSIS
     Dosage: GAVE ME 60 - FILLED AT CVS 9031 SW 94 ST MIA 33156 RX C37465900- #22
     Dates: start: 20080410, end: 20080411
  3. LYRICA [Suspect]
     Indication: SURGERY
     Dosage: GAVE ME 60 - FILLED AT CVS 9031 SW 94 ST MIA 33156 RX C37465900- #22
     Dates: start: 20080410, end: 20080411

REACTIONS (4)
  - MALAISE [None]
  - MEMORY IMPAIRMENT [None]
  - SOMNOLENCE [None]
  - THINKING ABNORMAL [None]
